FAERS Safety Report 5023147-8 (Version None)
Quarter: 2006Q2

REPORT INFORMATION
  Report Type: 
  Country: None (occurrence: None)
  Receive Date: 20060612
  Receipt Date: 20060607
  Transmission Date: 20061013
  Serious: Yes (Hospitalization)
  Sender: FDA-Public Use
  Company Number: FR-JNJFOC-20060500343

PATIENT
  Age: 59 Year
  Sex: Male

DRUGS (15)
  1. TAVANIC [Suspect]
     Indication: PNEUMONIA
     Route: 048
     Dates: start: 20060225, end: 20060311
  2. FLAGYL [Suspect]
     Indication: PNEUMONIA
     Route: 048
     Dates: start: 20060302, end: 20060312
  3. DEPAMIDE [Suspect]
     Indication: BIPOLAR I DISORDER
     Route: 048
     Dates: start: 20060225, end: 20060314
  4. ACETAMINOPHEN [Suspect]
     Indication: PNEUMONIA
     Route: 048
     Dates: start: 20060225, end: 20060314
  5. TRIZIVIR [Concomitant]
     Route: 065
  6. TRIZIVIR [Concomitant]
     Route: 065
  7. TRIZIVIR [Concomitant]
     Indication: HIV INFECTION
     Route: 065
  8. MEPRONIZINE [Concomitant]
     Route: 065
  9. MEPRONIZINE [Concomitant]
     Route: 065
  10. STILNOX [Concomitant]
     Route: 065
  11. EQUANIL [Concomitant]
     Route: 065
  12. THERALENE [Concomitant]
     Route: 065
  13. SKENAN [Concomitant]
     Route: 065
  14. ZYPREXA [Concomitant]
     Route: 065
  15. EFFEXOR [Concomitant]
     Route: 065

REACTIONS (1)
  - CHOLESTASIS [None]
